FAERS Safety Report 25177998 (Version 1)
Quarter: 2025Q2

REPORT INFORMATION
  Report Type: Spontaneous
  Country: US (occurrence: US)
  Receive Date: 20250409
  Receipt Date: 20250409
  Transmission Date: 20250716
  Serious: No
  Sender: MYLAN
  Company Number: US-MYLANLABS-2025M1026402

PATIENT
  Age: 56 Year
  Sex: Female
  Weight: 63.492 kg

DRUGS (3)
  1. ESTRADIOL TRANSDERMAL SYSTEM [Suspect]
     Active Substance: ESTRADIOL
     Indication: Menopause
     Dosage: 0.1 MILLIGRAM, QD (PER DAY, ONCE WEEKLY)
  2. LISINOPRIL [Concomitant]
     Active Substance: LISINOPRIL
     Dosage: 20 MILLIGRAM, QD (DAILY)
  3. METOPROLOL [Concomitant]
     Active Substance: METOPROLOL
     Dosage: 25 MILLIGRAM, BID (RWICE A DAY)

REACTIONS (4)
  - Application site pain [Recovering/Resolving]
  - Application site erythema [Recovering/Resolving]
  - Application site swelling [Recovering/Resolving]
  - Product adhesion issue [Unknown]

NARRATIVE: CASE EVENT DATE: 20250324
